FAERS Safety Report 11181107 (Version 1)
Quarter: 2015Q2

REPORT INFORMATION
  Report Type: Spontaneous
  Country: US (occurrence: US)
  Receive Date: 20150611
  Receipt Date: 20150611
  Transmission Date: 20150821
  Serious: No
  Sender: FDA-Public Use
  Company Number: US-009507513-1506USA003291

PATIENT
  Age: 67 Year
  Sex: Male

DRUGS (5)
  1. PREZISTA [Concomitant]
     Active Substance: DARUNAVIR ETHANOLATE
  2. COMPLERA [Suspect]
     Active Substance: EMTRICITABINE\RILPIVIRINE HYDROCHLORIDE\TENOFOVIR DISOPROXIL FUMARATE
  3. NORVIR [Concomitant]
     Active Substance: RITONAVIR
  4. ISENTRESS [Suspect]
     Active Substance: RALTEGRAVIR POTASSIUM
     Indication: HIV INFECTION
     Dosage: 400 MG, Q12H
     Route: 048
     Dates: start: 201503, end: 2015
  5. REFRESH ENDURA [Concomitant]

REACTIONS (3)
  - Drug dose omission [Unknown]
  - Product packaging counterfeit [Unknown]
  - Renal disorder [Unknown]

NARRATIVE: CASE EVENT DATE: 2015
